FAERS Safety Report 5169772-5 (Version None)
Quarter: 2006Q4

REPORT INFORMATION
  Report Type: 
  Country: None (occurrence: None)
  Receive Date: 20061212
  Receipt Date: 20061115
  Transmission Date: 20070319
  Serious: Yes (Hospitalization)
  Sender: FDA-Public Use
  Company Number: HQWYE760116NOV06

PATIENT
  Sex: Male

DRUGS (14)
  1. ENBREL [Suspect]
     Indication: RHEUMATOID ARTHRITIS
     Route: 058
     Dates: start: 20060803, end: 20060901
  2. ENBREL [Suspect]
     Route: 058
     Dates: start: 20060901, end: 20060908
  3. BUCILLAMINE [Concomitant]
     Indication: RHEUMATOID ARTHRITIS
     Route: 048
     Dates: start: 20051125, end: 20060908
  4. PREDNISOLONE [Concomitant]
     Indication: RHEUMATOID ARTHRITIS
     Route: 048
  5. ETODOLAC [Concomitant]
     Indication: RHEUMATOID ARTHRITIS
     Route: 048
  6. BONALON [Concomitant]
     Indication: OSTEOPOROSIS
     Route: 048
  7. METHYL SALICYLATE [Concomitant]
     Indication: RHEUMATOID ARTHRITIS
     Route: 065
  8. VOLTAREN [Concomitant]
     Indication: RHEUMATOID ARTHRITIS
     Route: 048
  9. CYTOTEC [Concomitant]
     Route: 048
  10. SELBEX [Concomitant]
     Route: 048
  11. KETOPROFEN [Concomitant]
     Indication: RHEUMATOID ARTHRITIS
     Route: 065
  12. FELBINAC [Concomitant]
     Indication: RHEUMATOID ARTHRITIS
     Route: 065
  13. METHOTREXATE [Concomitant]
     Indication: RHEUMATOID ARTHRITIS
     Route: 048
     Dates: start: 20030502, end: 20060908
  14. FOLIAMIN [Concomitant]
     Route: 048

REACTIONS (1)
  - MEDIASTINAL ABSCESS [None]
